FAERS Safety Report 9338397 (Version 2)
Quarter: 2013Q3

REPORT INFORMATION
  Report Type: Spontaneous
  Country: US (occurrence: US)
  Receive Date: 20130610
  Receipt Date: 20130808
  Transmission Date: 20140515
  Serious: Yes (Other)
  Sender: FDA-Public Use
  Company Number: US-PFIZER INC-2013174288

PATIENT
  Age: 70 Year
  Sex: Female

DRUGS (8)
  1. LYRICA [Suspect]
     Indication: PAIN
     Dosage: 50 MG, 1X/DAY
     Route: 048
  2. LYRICA [Suspect]
     Dosage: 3X 50 MG ONCE DAILY AT BEDTIME
     Route: 048
     Dates: start: 20120619
  3. HCTZ [Concomitant]
     Indication: HYPERTENSION
     Dosage: 25 MG, 1X/DAY
     Dates: start: 2010
  4. KCL [Concomitant]
     Indication: HYPOKALAEMIA
     Dosage: 30 MEQ, 1X/DAY
     Dates: start: 2010
  5. ENALAPRIL [Concomitant]
     Indication: HYPERTENSION
     Dosage: 5 MG, 1X/DAY
     Dates: start: 2011
  6. MAGNESIUM GLUCONATE [Concomitant]
     Indication: HYPOMAGNESAEMIA
     Dosage: 1500 MG, 1X/DAY
     Dates: start: 2010
  7. ALENDRONATE [Concomitant]
     Indication: OSTEOPOROSIS
     Dosage: 35 MG, WEEKLY
     Dates: start: 2009
  8. ASA [Concomitant]
     Indication: LIPIDS INCREASED
     Dosage: 81 MG, 1X/DAY
     Dates: start: 2009

REACTIONS (6)
  - Overdose [Unknown]
  - Cardiac failure congestive [Unknown]
  - Dyspnoea [Recovered/Resolved]
  - Oedema [Recovered/Resolved]
  - Weight increased [Recovered/Resolved]
  - Swelling [Unknown]
